FAERS Safety Report 20630737 (Version 1)
Quarter: 2022Q1

REPORT INFORMATION
  Report Type: Spontaneous
  Country: US (occurrence: None)
  Receive Date: 20220324
  Receipt Date: 20220324
  Transmission Date: 20220423
  Serious: No
  Sender: FDA-Public Use
  Company Number: 2022A109486

PATIENT
  Sex: Female
  Weight: 85.7 kg

DRUGS (5)
  1. BUDESONIDE\FORMOTEROL\GLYCOPYRRONIUM [Suspect]
     Active Substance: BUDESONIDE\FORMOTEROL\GLYCOPYRRONIUM
     Indication: Asthma
     Dosage: 2UG/INHAL TWO TIMES A DAY
     Route: 055
  2. METOPROLOL SUCCINATE [Concomitant]
     Active Substance: METOPROLOL SUCCINATE
     Indication: Hypertension
     Dosage: 50.0MG ONCE/SINGLE ADMINISTRATION
  3. CELEBREX [Concomitant]
     Active Substance: CELECOXIB
     Dosage: 100.0MG ONCE/SINGLE ADMINISTRATION
  4. ALBUTEROL [Concomitant]
     Active Substance: ALBUTEROL
  5. PROTONIX [Concomitant]
     Active Substance: PANTOPRAZOLE SODIUM
     Dosage: 40.0MG ONCE/SINGLE ADMINISTRATION

REACTIONS (3)
  - Pain [Unknown]
  - Urinary retention [Unknown]
  - Palpitations [Unknown]
